FAERS Safety Report 18556710 (Version 1)
Quarter: 2020Q4

REPORT INFORMATION
  Report Type: Spontaneous
  Country: US (occurrence: US)
  Receive Date: 20201128
  Receipt Date: 20201128
  Transmission Date: 20210114
  Serious: No
  Sender: FDA-Public Use
  Company Number: US-BIOGEN-2020BI00948403

PATIENT
  Sex: Female

DRUGS (1)
  1. SPINRAZA [Suspect]
     Active Substance: NUSINERSEN
     Indication: SPINAL MUSCULAR ATROPHY
     Dosage: ADMINISTER 12MG/5ML INTRATHECALLY ONCE EVERY 16 WEEKS.
     Route: 037
     Dates: end: 20200923

REACTIONS (2)
  - SARS-CoV-2 test positive [Unknown]
  - Decreased interest [Unknown]
